FAERS Safety Report 19670293 (Version 1)
Quarter: 2021Q3

REPORT INFORMATION
  Report Type: Spontaneous
  Country: US (occurrence: US)
  Receive Date: 20210806
  Receipt Date: 20210806
  Transmission Date: 20211014
  Serious: Yes (Hospitalization)
  Sender: FDA-Public Use
  Company Number: US-SAOL THERAPEUTICS-2020SAO00500

PATIENT
  Age: 46 Year
  Sex: Male
  Weight: 75.28 kg

DRUGS (5)
  1. LIORESAL [Suspect]
     Active Substance: BACLOFEN
     Indication: MUSCLE SPASTICITY
     Dosage: UNK
     Route: 037
     Dates: end: 20201103
  2. LAMICTAL [Concomitant]
     Active Substance: LAMOTRIGINE
  3. SEROQUEL [Concomitant]
     Active Substance: QUETIAPINE FUMARATE
  4. PROTEIN SUPPLEMENTS [Concomitant]
     Active Substance: PROTEIN
  5. ONFI [Concomitant]
     Active Substance: CLOBAZAM

REACTIONS (2)
  - Klebsiella infection [Recovered/Resolved]
  - Implant site infection [Recovered/Resolved]

NARRATIVE: CASE EVENT DATE: 20201031
